FAERS Safety Report 5196690-9 (Version None)
Quarter: 2006Q4

REPORT INFORMATION
  Report Type: 
  Country: None (occurrence: None)
  Receive Date: 20061227
  Receipt Date: 20061211
  Transmission Date: 20070319
  Serious: Yes (Other)
  Sender: FDA-Public Use
  Company Number: 2006063703

PATIENT
  Sex: Male

DRUGS (1)
  1. NEURONTIN [Suspect]
     Indication: NEUROPATHY
     Dosage: 2400 MG (800 MG, 3 IN 1 D)
     Dates: start: 20020101, end: 20040101

REACTIONS (13)
  - ANXIETY [None]
  - APATHY [None]
  - ASTHENIA [None]
  - DEPRESSION [None]
  - DISTURBANCE IN ATTENTION [None]
  - DRUG INEFFECTIVE [None]
  - INSOMNIA [None]
  - MALAISE [None]
  - OVERDOSE [None]
  - PAIN [None]
  - SUICIDAL IDEATION [None]
  - SUICIDE ATTEMPT [None]
  - THINKING ABNORMAL [None]
